FAERS Safety Report 24980160 (Version 1)
Quarter: 2025Q1

REPORT INFORMATION
  Report Type: Spontaneous
  Country: US (occurrence: None)
  Receive Date: 20250214
  Receipt Date: 20250214
  Transmission Date: 20250408
  Serious: Yes (Life-Threatening)
  Sender: FDA-CTU
  Company Number: None

PATIENT

DRUGS (1)
  1. PREDNISONE [Suspect]
     Active Substance: PREDNISONE

REACTIONS (5)
  - Ocular hyperaemia [None]
  - Increased appetite [None]
  - Weight increased [None]
  - Type 2 diabetes mellitus [None]
  - Visual impairment [None]
